FAERS Safety Report 13275248 (Version 5)
Quarter: 2018Q2

REPORT INFORMATION
  Report Type: Report from Study
  Country: BR (occurrence: BR)
  Receive Date: 20170227
  Receipt Date: 20180604
  Transmission Date: 20180711
  Serious: Yes (Other)
  Sender: FDA-Public Use
  Company Number: BR-BRISTOL-MYERS SQUIBB COMPANY-BMS-2017-012573

PATIENT
  Sex: Female

DRUGS (2)
  1. DILTIAZEM. [Concomitant]
     Active Substance: DILTIAZEM
     Indication: PRODUCT USED FOR UNKNOWN INDICATION
     Route: 065
  2. ABATACEPT [Suspect]
     Active Substance: ABATACEPT
     Indication: RHEUMATOID ARTHRITIS
     Dosage: 500 MG (2 VIALS OF 250 MG), EVERY 45 DAYS
     Route: 042

REACTIONS (5)
  - Off label use [Unknown]
  - Pulmonary fibrosis [Unknown]
  - Cataract [Recovering/Resolving]
  - Drug resistance [Unknown]
  - Pain [Recovering/Resolving]
